FAERS Safety Report 8171611-5 (Version None)
Quarter: 2012Q1

REPORT INFORMATION
  Report Type: 
  Country: None (occurrence: None)
  Receive Date: 20120228
  Receipt Date: 20120221
  Transmission Date: 20120608
  Serious: Yes (Other)
  Sender: FDA-Public Use
  Company Number: AU-ABBOTT-11P-008-0876176-00

PATIENT
  Sex: Male

DRUGS (2)
  1. TRUVADA [Concomitant]
     Indication: PRODUCT USED FOR UNKNOWN INDICATION
  2. KALETRA [Suspect]
     Indication: PRODUCT USED FOR UNKNOWN INDICATION

REACTIONS (3)
  - NEPHROLITHIASIS [None]
  - DRUG LEVEL INCREASED [None]
  - URETERIC OBSTRUCTION [None]
